FAERS Safety Report 10723883 (Version 2)
Quarter: 2017Q1

REPORT INFORMATION
  Report Type: Spontaneous
  Country: VN (occurrence: VN)
  Receive Date: 20150120
  Receipt Date: 20170323
  Transmission Date: 20170428
  Serious: Yes (Hospitalization, Other)
  Sender: FDA-Public Use
  Company Number: VN-009507513-1501VNM005638

PATIENT
  Sex: Female

DRUGS (1)
  1. COZAAR [Suspect]
     Active Substance: LOSARTAN POTASSIUM
     Indication: HYPERTENSION
     Dosage: STRENGTH 50 MG, ONE TABLET ONCE A DAY
     Route: 048
     Dates: start: 20141130

REACTIONS (3)
  - Cataract [Not Recovered/Not Resolved]
  - Intervertebral disc protrusion [Unknown]
  - Pneumonia [Unknown]

NARRATIVE: CASE EVENT DATE: 20160301
